FAERS Safety Report 6915993-8 (Version None)
Quarter: 2010Q3

REPORT INFORMATION
  Report Type: 
  Country: None (occurrence: None)
  Receive Date: 20100809
  Receipt Date: 20100809
  Transmission Date: 20110219
  Serious: Yes (Hospitalization)
  Sender: FDA-Public Use
  Company Number: None

PATIENT
  Age: 77 Year
  Sex: Male
  Weight: 78 kg

DRUGS (9)
  1. ALTEPLASE 75 MG [Suspect]
     Indication: ISCHAEMIC STROKE
     Dosage: ALTEPLASE ONE IV BOLUS
     Route: 040
     Dates: start: 20100526, end: 20100526
  2. ASPIRIN [Concomitant]
  3. ATORVASTATIN [Concomitant]
  4. HYDROCHLOROTHIAZIDE [Concomitant]
  5. LISINOPRIL [Concomitant]
  6. METOPROLOL XL [Concomitant]
  7. NIFEDIPINE [Concomitant]
  8. SILDENAFIL [Concomitant]
  9. SAW PALMETTO [Concomitant]

REACTIONS (6)
  - APHASIA [None]
  - HAEMORRHAGE INTRACRANIAL [None]
  - HYPOTONIA [None]
  - LETHARGY [None]
  - MENTAL STATUS CHANGES [None]
  - NERVOUS SYSTEM DISORDER [None]
